FAERS Safety Report 20324230 (Version 2)
Quarter: 2022Q1

REPORT INFORMATION
  Report Type: Spontaneous
  Country: US (occurrence: US)
  Receive Date: 20220111
  Receipt Date: 20220303
  Transmission Date: 20220423
  Serious: Yes (Other)
  Sender: FDA-Public Use
  Company Number: US-TEVA-2022-US-1997107

PATIENT
  Sex: Female

DRUGS (2)
  1. CLONAZEPAM [Suspect]
     Active Substance: CLONAZEPAM
     Route: 065
  2. VALIUM [Concomitant]
     Active Substance: DIAZEPAM

REACTIONS (6)
  - Suicide attempt [Unknown]
  - Drug dependence [Unknown]
  - Feeling abnormal [Unknown]
  - Impaired work ability [Unknown]
  - Hypertension [Unknown]
  - Hypoaesthesia [Unknown]
